FAERS Safety Report 12777783 (Version 1)
Quarter: 2016Q3

REPORT INFORMATION
  Report Type: Spontaneous
  Country: US (occurrence: US)
  Receive Date: 20160924
  Receipt Date: 20160924
  Transmission Date: 20161109
  Serious: No
  Sender: FDA-Public Use
  Company Number: US-JAZZ-2016-US-010510

PATIENT
  Sex: Female

DRUGS (21)
  1. XYREM [Suspect]
     Active Substance: SODIUM OXYBATE
     Indication: PRODUCT USED FOR UNKNOWN INDICATION
     Dosage: 2.5 G, BID
     Route: 048
     Dates: start: 201511, end: 201605
  2. POTASSIUM CL [Concomitant]
     Active Substance: POTASSIUM CHLORIDE
  3. PROVIGIL [Concomitant]
     Active Substance: MODAFINIL
  4. XYREM [Suspect]
     Active Substance: SODIUM OXYBATE
     Dosage: 3 G, SECOND DOSE
     Route: 001
     Dates: start: 201605
  5. ASTELIN [Concomitant]
     Active Substance: AZELASTINE HYDROCHLORIDE
  6. RETIN-A [Concomitant]
     Active Substance: TRETINOIN
  7. SPRINTEC [Concomitant]
     Active Substance: ETHINYL ESTRADIOL\NORGESTIMATE
  8. YASMIN [Concomitant]
     Active Substance: DROSPIRENONE\ETHINYL ESTRADIOL
  9. XYREM [Suspect]
     Active Substance: SODIUM OXYBATE
     Dosage: 3 G, BID
     Route: 048
     Dates: start: 201605, end: 201605
  10. MELATONIN [Concomitant]
     Active Substance: MELATONIN
  11. FLONASE ALLERGY RLF [Concomitant]
  12. TYLENOL EXTRA STRENGTH [Concomitant]
     Active Substance: ACETAMINOPHEN
  13. CYCLOBENZAPRINE HCL [Concomitant]
     Active Substance: CYCLOBENZAPRINE HYDROCHLORIDE
  14. IBUPROFEN. [Concomitant]
     Active Substance: IBUPROFEN
  15. XYREM [Suspect]
     Active Substance: SODIUM OXYBATE
     Dosage: 4 G, FIRST DOSE
     Route: 048
     Dates: start: 201605
  16. LASIX [Concomitant]
     Active Substance: FUROSEMIDE
  17. BACLOFEN. [Concomitant]
     Active Substance: BACLOFEN
  18. GIANVI [Concomitant]
     Active Substance: DROSPIRENONE\ETHINYL ESTRADIOL
  19. SINGULAIR [Concomitant]
     Active Substance: MONTELUKAST SODIUM
  20. ASPIRIN. [Concomitant]
     Active Substance: ASPIRIN
  21. LIDODERM [Concomitant]
     Active Substance: LIDOCAINE

REACTIONS (5)
  - Pain [Not Recovered/Not Resolved]
  - Fluid retention [Unknown]
  - Paraesthesia [Not Recovered/Not Resolved]
  - Hypoaesthesia [Not Recovered/Not Resolved]
  - Muscle spasms [Unknown]
